FAERS Safety Report 10468440 (Version 1)
Quarter: 2014Q3

REPORT INFORMATION
  Report Type: Spontaneous
  Country: US (occurrence: US)
  Receive Date: 20140922
  Receipt Date: 20140922
  Transmission Date: 20150326
  Serious: Yes (Other)
  Sender: FDA-Public Use
  Company Number: US-ALLERGAN-1315367US

PATIENT
  Age: 17 Year
  Sex: Female

DRUGS (1)
  1. LASTACAFT [Suspect]
     Active Substance: ALCAFTADINE
     Indication: EYE PRURITUS
     Dosage: 1 DROP IN BOTH EYES, SINGLE (1 APPLICATION)
     Route: 047
     Dates: start: 20130910, end: 20130910

REACTIONS (3)
  - Condition aggravated [Unknown]
  - Drug hypersensitivity [Unknown]
  - Feeling abnormal [Unknown]

NARRATIVE: CASE EVENT DATE: 20130910
